FAERS Safety Report 4752784-0 (Version None)
Quarter: 2005Q3

REPORT INFORMATION
  Report Type: 
  Country: None (occurrence: None)
  Receive Date: 20050823
  Receipt Date: 20050808
  Transmission Date: 20060218
  Serious: Yes (Hospitalization)
  Sender: FDA-Public Use
  Company Number: 202618

PATIENT
  Age: 55 Year
  Sex: Female

DRUGS (16)
  1. AVONEX [Suspect]
     Indication: MULTIPLE SCLEROSIS
     Dosage: 30 UG; QW; IM
     Route: 030
     Dates: start: 19990119, end: 20030113
  2. AVONEX [Suspect]
     Indication: MULTIPLE SCLEROSIS
     Dosage: 30 UG; QW; IM
     Route: 030
     Dates: start: 20040604
  3. VICODIN [Concomitant]
  4. BETASERON [Concomitant]
  5. LORTAB [Concomitant]
  6. TENORMIN [Concomitant]
  7. XANAX [Concomitant]
  8. MODURETIC 5-50 [Concomitant]
  9. MACRODANTIN [Concomitant]
  10. K+ [Concomitant]
  11. PREMPRO [Concomitant]
  12. LEVSIN [Concomitant]
  13. BEXTRA [Concomitant]
  14. CLARITIN [Concomitant]
  15. LIORESAL [Concomitant]
  16. NICOTINE [Concomitant]

REACTIONS (8)
  - ANAEMIA [None]
  - ARTHRALGIA [None]
  - KNEE ARTHROPLASTY [None]
  - NICOTINE DEPENDENCE [None]
  - OXYGEN SATURATION DECREASED [None]
  - PNEUMONIA [None]
  - POST PROCEDURAL COMPLICATION [None]
  - SCOLIOSIS [None]
